FAERS Safety Report 9238162 (Version 1)
Quarter: 2013Q2

REPORT INFORMATION
  Report Type: Spontaneous
  Country: US (occurrence: None)
  Receive Date: 20130415
  Receipt Date: 20130415
  Transmission Date: 20140414
  Serious: Yes (Hospitalization)
  Sender: FDA-Public Use
  Company Number: ACO_35385_2013

PATIENT
  Age: 41 Year
  Sex: Female
  Weight: 72.6 kg

DRUGS (8)
  1. AMPYRA (DALFAMPRIDINE) TABLET, 10MG [Suspect]
     Indication: MULTIPLE SCLEROSIS
     Route: 048
  2. AMPYRA (DALFAMPRIDINE) TABLET, 10MG [Suspect]
     Indication: GAIT DISTURBANCE
     Route: 048
  3. COPAXONE (GLATIRAMER ACETATE) [Concomitant]
  4. LUPRON (LEUPRORELIN ACETATE) [Concomitant]
  5. TYLENOL W/CODEINE (CODEINE PHOSPHATE, PARACETAMOL) [Concomitant]
  6. TAMOXIFEN (TAMOXIFEN CITRATE) [Concomitant]
  7. LORTAB (HYDROCODONE BITARTRATE, PARACETAMOL, PROMETHAZINE HYDROCHLORIDE) [Concomitant]
  8. DILAUDID (HYDROMORPHONE HYDROCHLORIDE) INJECTION [Concomitant]

REACTIONS (4)
  - Ovarian cyst ruptured [None]
  - Gastrointestinal sounds abnormal [None]
  - Weight decreased [None]
  - Decreased appetite [None]
